FAERS Safety Report 7823693-5 (Version None)
Quarter: 2011Q4

REPORT INFORMATION
  Report Type: 
  Country: None (occurrence: None)
  Receive Date: 20111014
  Receipt Date: 20111012
  Transmission Date: 20120403
  Serious: Yes (Other)
  Sender: FDA-Public Use
  Company Number: 201111333

PATIENT
  Age: 45 Year
  Sex: Female

DRUGS (3)
  1. LIORESAL [Suspect]
     Indication: MUSCLE SPASTICITY
     Dosage: 90 MCG, DAILY, INTRATHECAL
     Route: 037
  2. DILAUDID [Concomitant]
  3. FENTANYL-100 [Concomitant]

REACTIONS (5)
  - INCISION SITE INFECTION [None]
  - DEVICE DISLOCATION [None]
  - INCISION SITE PAIN [None]
  - DEVICE CONNECTION ISSUE [None]
  - SECRETION DISCHARGE [None]
